FAERS Safety Report 6414953-3 (Version None)
Quarter: 2009Q4

REPORT INFORMATION
  Report Type: 
  Country: None (occurrence: None)
  Receive Date: 20091026
  Receipt Date: 20090708
  Transmission Date: 20100525
  Serious: No
  Sender: FDA-Public Use
  Company Number: US-ABBOTT-09P-163-0584679-00

PATIENT
  Sex: Female
  Weight: 67.192 kg

DRUGS (1)
  1. LUPRON DEPOT [Suspect]
     Indication: UTERINE LEIOMYOMA
     Dosage: UNKNOWN
     Dates: start: 20090401

REACTIONS (2)
  - METRORRHAGIA [None]
  - RASH [None]
